FAERS Safety Report 22378623 (Version 1)
Quarter: 2023Q2

REPORT INFORMATION
  Report Type: Spontaneous
  Country: US (occurrence: US)
  Receive Date: 20230529
  Receipt Date: 20230529
  Transmission Date: 20230721
  Serious: No
  Sender: FDA-Public Use
  Company Number: US-GSK-US2023AMR075085

PATIENT
  Age: 31 Year
  Sex: Male

DRUGS (1)
  1. NUCALA [Suspect]
     Active Substance: MEPOLIZUMAB
     Indication: Asthma
     Dosage: 1 DF, MO, ONE INJECTION PER MONTH
     Dates: start: 202304

REACTIONS (2)
  - Fatigue [Unknown]
  - Dizziness [Unknown]
